FAERS Safety Report 21263529 (Version 1)
Quarter: 2022Q3

REPORT INFORMATION
  Report Type: Report from Study
  Country: ES (occurrence: ES)
  Receive Date: 20220829
  Receipt Date: 20220829
  Transmission Date: 20221026
  Serious: Yes (Hospitalization, Other)
  Sender: FDA-Public Use
  Company Number: ES-TAKEDA-2022TUS058934

PATIENT
  Age: 78 Year
  Sex: Male

DRUGS (28)
  1. ICATIBANT [Suspect]
     Active Substance: ICATIBANT ACETATE
     Indication: Hereditary angioedema
     Dosage: UNK
     Route: 065
     Dates: start: 2012
  2. ICATIBANT [Suspect]
     Active Substance: ICATIBANT ACETATE
     Indication: Hereditary angioedema
     Dosage: UNK
     Route: 065
     Dates: start: 2012
  3. ICATIBANT [Suspect]
     Active Substance: ICATIBANT ACETATE
     Dosage: 30 MILLIGRAM
     Route: 050
     Dates: start: 20210205
  4. ICATIBANT [Suspect]
     Active Substance: ICATIBANT ACETATE
     Dosage: 30 MILLIGRAM
     Route: 050
     Dates: start: 20210205
  5. HUMAN C1-ESTERASE INHIBITOR [Concomitant]
     Active Substance: HUMAN C1-ESTERASE INHIBITOR
     Indication: Product used for unknown indication
     Dosage: 1000 INTERNATIONAL UNIT
     Route: 042
  6. OMEPRAZOLE [Concomitant]
     Active Substance: OMEPRAZOLE
     Dosage: 20 MILLIGRAM, QD
     Route: 048
  7. LEVOTHYROXINE SODIUM [Concomitant]
     Active Substance: LEVOTHYROXINE SODIUM
     Indication: Hypothyroidism
     Dosage: 200 MICROGRAM, QD
     Route: 048
     Dates: start: 20090101
  8. AMILORIDE [Concomitant]
     Active Substance: AMILORIDE
     Indication: Blood pressure increased
     Dosage: 5 MILLIGRAM, QD
     Route: 048
     Dates: start: 20090101
  9. SIMVASTATIN [Concomitant]
     Active Substance: SIMVASTATIN
     Indication: Hypercholesterolaemia
     Dosage: 10 MILLIGRAM, QD
     Route: 048
     Dates: start: 20090414
  10. CALCIUM [Concomitant]
     Active Substance: CALCIUM
     Indication: Hypoparathyroidism
     Dosage: 500 MILLIGRAM, BID
     Route: 048
     Dates: start: 20100614, end: 2014
  11. CALCIUM [Concomitant]
     Active Substance: CALCIUM
     Dosage: 500 MILLIGRAM, QD
     Route: 048
     Dates: start: 20160509
  12. TRANEXAMIC ACID [Concomitant]
     Active Substance: TRANEXAMIC ACID
     Indication: Prophylaxis
     Dosage: 500 MILLIGRAM, BID
     Route: 048
     Dates: start: 20111007, end: 20140216
  13. TRANEXAMIC ACID [Concomitant]
     Active Substance: TRANEXAMIC ACID
     Dosage: 500 MILLIGRAM, Q12H
     Route: 048
     Dates: start: 20140308, end: 20161001
  14. METFORMIN [Concomitant]
     Active Substance: METFORMIN HYDROCHLORIDE
     Indication: Diabetes mellitus
     Dosage: 850 MILLIGRAM, QD
     Route: 048
     Dates: start: 20121116
  15. AMLODIPINE BESYLATE [Concomitant]
     Active Substance: AMLODIPINE BESYLATE
     Indication: Blood pressure increased
     Dosage: 5 MILLIGRAM, QD
     Route: 048
     Dates: start: 20130115
  16. METOPIRONE [Concomitant]
     Active Substance: METYRAPONE
     Indication: Hyperplasia adrenal
     Dosage: 250 MILLIGRAM, QD
     Route: 048
     Dates: start: 20130115, end: 2014
  17. STANOZOLOL [Concomitant]
     Active Substance: STANOZOLOL
     Indication: Prophylaxis
     Dosage: 2 MILLIGRAM, BID
     Route: 048
     Dates: start: 20140217, end: 20140220
  18. STANOZOLOL [Concomitant]
     Active Substance: STANOZOLOL
     Dosage: 500 MILLIGRAM, QD
     Route: 048
     Dates: start: 20140225, end: 20140308
  19. HUMAN C1-ESTERASE INHIBITOR [Concomitant]
     Active Substance: HUMAN C1-ESTERASE INHIBITOR
     Indication: Prophylaxis
     Dosage: 1500 INTERNATIONAL UNIT
     Route: 042
     Dates: start: 20140221, end: 20140221
  20. CALCIFEDIOL [Concomitant]
     Active Substance: CALCIFEDIOL
     Indication: Chronic kidney disease
     Dosage: 166 MICROGRAM, MONTHLY
     Route: 048
     Dates: start: 20170309
  21. CEFIXIME [Concomitant]
     Active Substance: CEFIXIME
     Indication: Cystitis haemorrhagic
     Dosage: 200 MILLIGRAM, BID
     Route: 048
     Dates: start: 20171024, end: 20171030
  22. VALSARTAN [Concomitant]
     Active Substance: VALSARTAN
     Indication: Hypertension
     Dosage: 160 MILLIGRAM, QD
     Route: 048
     Dates: start: 20180201
  23. DOXAZOSIN [Concomitant]
     Active Substance: DOXAZOSIN MESYLATE
     Indication: Blood pressure increased
     Dosage: 4 MILLIGRAM, QD
     Route: 048
     Dates: start: 20180405
  24. TORSEMIDE [Concomitant]
     Active Substance: TORSEMIDE
     Indication: Blood pressure increased
     Dosage: 10 MILLIGRAM, QD
     Route: 048
     Dates: start: 20180407
  25. BARNIDIPINE [Concomitant]
     Active Substance: BARNIDIPINE
     Indication: Blood pressure increased
     Dosage: 10 MILLIGRAM, QD
     Route: 048
     Dates: start: 20181106
  26. CALCITRIOL [Concomitant]
     Active Substance: CALCITRIOL
     Indication: Hypocalcaemia
     Dosage: 0.25 MICROGRAM, QD
     Route: 048
     Dates: start: 20210315
  27. LEVOFLOXACIN [Concomitant]
     Active Substance: LEVOFLOXACIN
     Indication: Pneumonia
     Dosage: 250 MILLIGRAM, QD
     Route: 048
     Dates: start: 20210703, end: 20210707
  28. PIPERACILLIN AND TAZOBACTAM [Concomitant]
     Active Substance: PIPERACILLIN SODIUM\TAZOBACTAM SODIUM
     Indication: Pneumonia
     Dosage: UNK
     Route: 042
     Dates: start: 20210707, end: 20210714

REACTIONS (3)
  - Anaemia [Recovered/Resolved]
  - Vasodilatation [Recovered/Resolved]
  - Pneumonia [Recovered/Resolved]

NARRATIVE: CASE EVENT DATE: 20201215
